FAERS Safety Report 13394910 (Version 2)
Quarter: 2017Q2

REPORT INFORMATION
  Report Type: Spontaneous
  Country: US (occurrence: US)
  Receive Date: 20170403
  Receipt Date: 20170407
  Transmission Date: 20170830
  Serious: Yes (Hospitalization, Other)
  Sender: FDA-Public Use
  Company Number: US-AMGEN-USASP2017049166

PATIENT
  Age: 53 Year
  Sex: Male

DRUGS (1)
  1. ENBREL [Suspect]
     Active Substance: ETANERCEPT
     Indication: ANKYLOSING SPONDYLITIS
     Dosage: 50 MG, QWK (EVERY THURSDAY)
     Route: 065
     Dates: start: 201701

REACTIONS (6)
  - Chest pain [Unknown]
  - Rectal haemorrhage [Unknown]
  - Erythema [Not Recovered/Not Resolved]
  - Hypoaesthesia [Unknown]
  - Skin haemorrhage [Recovered/Resolved]
  - Skin swelling [Not Recovered/Not Resolved]

NARRATIVE: CASE EVENT DATE: 2017
